FAERS Safety Report 6981954-6 (Version None)
Quarter: 2010Q3

REPORT INFORMATION
  Report Type: 
  Country: None (occurrence: None)
  Receive Date: 20100909
  Receipt Date: 20100830
  Transmission Date: 20110219
  Serious: Yes (Other)
  Sender: FDA-Public Use
  Company Number: 009389

PATIENT
  Age: 70 Year
  Sex: Male

DRUGS (6)
  1. ROTIGOTINE (ROTIGOTINE) [Suspect]
     Indication: PARKINSON'S DISEASE
     Dosage: 8 MCG, QD, (16 MG QD), (16 MG, QD)
  2. QUETIAPINE [Suspect]
     Dosage: 12.5 MG, DAILY,
  3. HYDROCHLOROTHIAZIDE [Suspect]
  4. RASAGILINE [Suspect]
     Indication: ON AND OFF PHENOMENON
  5. STALEVO 100 [Concomitant]
  6. ANTIHYPERTENSIVES [Concomitant]

REACTIONS (8)
  - ABNORMAL BEHAVIOUR [None]
  - CONFUSIONAL STATE [None]
  - DISEASE PROGRESSION [None]
  - HYPERHIDROSIS [None]
  - OEDEMA PERIPHERAL [None]
  - ON AND OFF PHENOMENON [None]
  - PARKINSON'S DISEASE [None]
  - RHABDOMYOLYSIS [None]
